FAERS Safety Report 18029111 (Version 8)
Quarter: 2020Q4

REPORT INFORMATION
  Report Type: Spontaneous
  Country: US (occurrence: US)
  Receive Date: 20200716
  Receipt Date: 20201106
  Transmission Date: 20210113
  Serious: Yes (Hospitalization, Other)
  Sender: FDA-Public Use
  Company Number: US-GLAXOSMITHKLINE-US2020AMR123993

PATIENT
  Age: 64 Year
  Sex: Female

DRUGS (8)
  1. BREO ELLIPTA [Suspect]
     Active Substance: FLUTICASONE FUROATE\VILANTEROL TRIFENATATE
     Indication: EMPHYSEMA
     Dosage: 1 PUFF(S), QD (100/25 MCG)
     Dates: start: 20200723, end: 20200825
  2. VENTOLIN HFA [Suspect]
     Active Substance: ALBUTEROL SULFATE
     Indication: ASTHMA
  3. ANORO ELLIPTA [Suspect]
     Active Substance: UMECLIDINIUM BROMIDE\VILANTEROL TRIFENATATE
     Indication: EMPHYSEMA
     Dosage: UNK
     Route: 065
  4. ADVAIR DISKUS [Suspect]
     Active Substance: FLUTICASONE PROPIONATE\SALMETEROL XINAFOATE
     Indication: PRODUCT USED FOR UNKNOWN INDICATION
     Dosage: UNK
     Route: 065
     Dates: start: 20200831
  5. ADVAIR DISKUS [Suspect]
     Active Substance: FLUTICASONE PROPIONATE\SALMETEROL XINAFOATE
     Indication: PRODUCT USED FOR UNKNOWN INDICATION
     Dosage: UNK UNK, BID
     Dates: start: 20200904, end: 20200918
  6. VENTOLIN HFA [Suspect]
     Active Substance: ALBUTEROL SULFATE
     Indication: PNEUMONIA
  7. VENTOLIN HFA [Suspect]
     Active Substance: ALBUTEROL SULFATE
     Indication: EMPHYSEMA
     Dosage: 2 PUFF(S) (2 PUFFS EVERY 4 HOURS AS NEEDE)
     Dates: start: 2009
  8. ADVAIR DISKUS [Suspect]
     Active Substance: FLUTICASONE PROPIONATE\SALMETEROL XINAFOATE
     Dosage: UNK
     Dates: start: 20200904

REACTIONS (16)
  - Pneumonia [Unknown]
  - Lung neoplasm malignant [Unknown]
  - Pulmonary haemorrhage [Not Recovered/Not Resolved]
  - Tonsillar haemorrhage [Recovered/Resolved]
  - Dyspnoea [Unknown]
  - Muscle spasms [Unknown]
  - Haemoptysis [Unknown]
  - Cough [Unknown]
  - Product use in unapproved indication [Unknown]
  - Throat irritation [Unknown]
  - Pharyngeal haemorrhage [Recovered/Resolved]
  - Myalgia [Unknown]
  - Asthma [Unknown]
  - Therapeutic response unexpected [Unknown]
  - Pulmonary mass [Unknown]
  - Dry throat [Unknown]

NARRATIVE: CASE EVENT DATE: 20200726
